FAERS Safety Report 5034094-X (Version None)
Quarter: 2006Q2

REPORT INFORMATION
  Report Type: 
  Country: None (occurrence: None)
  Receive Date: 20060518
  Receipt Date: 20051014
  Transmission Date: 20061013
  Serious: Yes (Other)
  Sender: FDA-Public Use
  Company Number: 2005142682

PATIENT
  Sex: Female

DRUGS (2)
  1. PROVERA [Suspect]
     Indication: ILL-DEFINED DISORDER
     Dosage: ORAL
     Route: 048
  2. ESTROGENS SOL/INJ [Suspect]
     Indication: ILL-DEFINED DISORDER

REACTIONS (1)
  - TRANSIENT ISCHAEMIC ATTACK [None]
